FAERS Safety Report 7170085-0 (Version None)
Quarter: 2010Q4

REPORT INFORMATION
  Report Type: 
  Country: None (occurrence: None)
  Receive Date: 20101214
  Receipt Date: 20101214
  Transmission Date: 20110411
  Serious: No
  Sender: FDA-Public Use
  Company Number: None

PATIENT
  Age: 70 Year
  Sex: Female
  Weight: 62.5964 kg

DRUGS (1)
  1. BONIVA [Suspect]
     Indication: OSTEOPENIA
     Dosage: 150MG ONCE A MONTH BY MOUTH
     Route: 048
     Dates: start: 20100217, end: 20101117

REACTIONS (5)
  - ABNORMAL DREAMS [None]
  - CARDIAC DISORDER [None]
  - HEART RATE IRREGULAR [None]
  - MIDDLE INSOMNIA [None]
  - PALPITATIONS [None]
